FAERS Safety Report 18214004 (Version 1)
Quarter: 2020Q3

REPORT INFORMATION
  Report Type: Spontaneous
  Country: AT (occurrence: AT)
  Receive Date: 20200831
  Receipt Date: 20200831
  Transmission Date: 20201103
  Serious: Yes (Life-Threatening)
  Sender: FDA-Public Use
  Company Number: AT-ELI_LILLY_AND_COMPANY-AT202008011282

PATIENT
  Age: 49 Year
  Sex: Female

DRUGS (1)
  1. DULOXETINE HYDROCHLORIDE. [Suspect]
     Active Substance: DULOXETINE HYDROCHLORIDE
     Indication: MYOFASCIAL PAIN SYNDROME
     Dosage: 30 MG, DAILY
     Route: 065
     Dates: start: 20200807, end: 20200811

REACTIONS (2)
  - Feeling guilty [Recovering/Resolving]
  - Suicidal ideation [Recovering/Resolving]
